FAERS Safety Report 6985281-2 (Version None)
Quarter: 2010Q3

REPORT INFORMATION
  Report Type: 
  Country: None (occurrence: None)
  Receive Date: 20100915
  Receipt Date: 20100909
  Transmission Date: 20110219
  Serious: Yes (Hospitalization)
  Sender: FDA-Public Use
  Company Number: JP-ABBOTT-07P-087-0360726-00

PATIENT
  Age: 54 Year
  Sex: Male

DRUGS (2)
  1. CLARITHROMYCIN [Suspect]
     Indication: PRODUCT USED FOR UNKNOWN INDICATION
     Route: 048
     Dates: start: 20060304, end: 20060310
  2. METHIMAZOLE [Concomitant]
     Indication: BASEDOW'S DISEASE
     Dosage: NOT REPORTED

REACTIONS (2)
  - THYROTOXIC CRISIS [None]
  - TUBULOINTERSTITIAL NEPHRITIS [None]
